FAERS Safety Report 10553573 (Version 3)
Quarter: 2015Q1

REPORT INFORMATION
  Report Type: Spontaneous
  Country: RU (occurrence: None)
  Receive Date: 20141028
  Receipt Date: 20150120
  Transmission Date: 20150720
  Serious: Yes (Other)
  Sender: FDA-Public Use
  Company Number: B1025286A

PATIENT
  Sex: Male

DRUGS (13)
  1. KIVEXA [Suspect]
     Active Substance: ABACAVIR SULFATE\LAMIVUDINE
     Indication: HIV INFECTION
     Dosage: U UNKNOWN
     Dates: start: 2014, end: 2014
  2. IBUPROFEN (IBUPROFEN) UNKNOWN [Suspect]
     Active Substance: IBUPROFEN
     Indication: PRODUCT USED FOR UNKNOWN INDICATION
     Dosage: U UNKNOWN
     Dates: start: 20140626, end: 2014
  3. STOCRIN [Suspect]
     Active Substance: EFAVIRENZ
     Indication: HIV INFECTION
     Dosage: U UNKNOWN
     Dates: start: 2014, end: 2014
  4. ZIDOVUDINE (ZIDOVUDINE) [Concomitant]
     Active Substance: ZIDOVUDINE
  5. MAGNE B6 [Suspect]
     Active Substance: MAGNESIUM\PYRIDOXINE
  6. LAMIVUDINE (LAMIVUDINE) [Concomitant]
     Active Substance: LAMIVUDINE
  7. RITONAVIR (RITONAVIR) [Concomitant]
     Active Substance: RITONAVIR
  8. VITAMIN B6 [Suspect]
     Active Substance: PYRIDOXINE HYDROCHLORIDE
     Indication: HIV INFECTION
     Dosage: U UNKNOWN
     Dates: start: 20140626, end: 2014
  9. FLUCOSTAT [Suspect]
     Active Substance: FLUCONAZOLE
     Indication: PRODUCT USED FOR UNKNOWN INDICATION
     Dosage: 1 DF, WE
  10. AZITHROMYCIN [Suspect]
     Active Substance: AZITHROMYCIN ANHYDROUS
     Indication: HIV INFECTION
     Dosage: U UNKNOWN
     Dates: end: 2014
  11. ETHAMBUTOL + INH + PYRAZINAMID + RIFAMPICIN [Suspect]
     Active Substance: ETHAMBUTOL\ISONIAZID\PYRAZINAMIDE\RIFAMPIN
     Indication: ANTIBIOTIC PROPHYLAXIS
     Dates: start: 2014, end: 2014
  12. REYATAZ [Concomitant]
     Active Substance: ATAZANAVIR SULFATE
  13. SPIRULINA [Suspect]
     Active Substance: SPIRULINA
     Indication: HIV INFECTION
     Dosage: U UNKNOWN
     Dates: start: 20140626, end: 2014

REACTIONS (18)
  - Skin burning sensation [None]
  - Oropharyngeal pain [None]
  - Pneumonia [None]
  - Tinnitus [None]
  - Dizziness [None]
  - Rash [None]
  - Lymphadenopathy [None]
  - Asthenia [None]
  - Pain [None]
  - Disseminated tuberculosis [None]
  - Herpes zoster [None]
  - Rash erythematous [None]
  - Face oedema [None]
  - Eye irritation [None]
  - Lip dry [None]
  - Nasopharyngitis [None]
  - Blister [None]
  - Pruritus [None]

NARRATIVE: CASE EVENT DATE: 2014
